FAERS Safety Report 5834005-0 (Version None)
Quarter: 2008Q3

REPORT INFORMATION
  Report Type: 
  Country: None (occurrence: None)
  Receive Date: 20080805
  Receipt Date: 20080725
  Transmission Date: 20090109
  Serious: Yes (Disabling)
  Sender: FDA-Public Use
  Company Number: GB-BAXTER-2008BH007915

PATIENT
  Age: 62 Year
  Sex: Male

DRUGS (4)
  1. CIPRO [Suspect]
     Indication: LOWER RESPIRATORY TRACT INFECTION
     Route: 065
  2. ALBUTEROL [Concomitant]
     Route: 055
  3. BECLOMETHASONE DIPROPIONATE [Concomitant]
     Route: 055
  4. PREDNISOLONE [Concomitant]
     Route: 048

REACTIONS (1)
  - TENDON INJURY [None]
